FAERS Safety Report 8132410-3 (Version None)
Quarter: 2012Q1

REPORT INFORMATION
  Report Type: 
  Country: None (occurrence: None)
  Receive Date: 20120213
  Receipt Date: 20120131
  Transmission Date: 20120608
  Serious: Yes (Hospitalization)
  Sender: FDA-Public Use
  Company Number: US-ELI_LILLY_AND_COMPANY-US201201000986

PATIENT
  Sex: Female
  Weight: 88 kg

DRUGS (5)
  1. SOLU-MEDROL [Concomitant]
  2. FORTEO [Suspect]
     Indication: BONE DISORDER
     Dosage: UNK UNK, QD
     Route: 058
  3. DUONEB [Concomitant]
  4. ANTIBIOTICS [Concomitant]
  5. ZOSYN [Concomitant]

REACTIONS (3)
  - BRONCHITIS [None]
  - CHRONIC OBSTRUCTIVE PULMONARY DISEASE [None]
  - BLOOD CALCIUM INCREASED [None]
